FAERS Safety Report 12836196 (Version 1)
Quarter: 2016Q4

REPORT INFORMATION
  Report Type: Spontaneous
  Country: US (occurrence: US)
  Receive Date: 20161011
  Receipt Date: 20161011
  Transmission Date: 20170207
  Serious: Yes (Hospitalization)
  Sender: FDA-Public Use
  Company Number: US-IMPAX LABORATORIES, INC-2016-IPXL-01388

PATIENT
  Age: 25 Year
  Sex: Female

DRUGS (1)
  1. DIVALPROEX SODIUM ER [Suspect]
     Active Substance: DIVALPROEX SODIUM
     Indication: SUICIDE ATTEMPT
     Dosage: UNK
     Route: 048

REACTIONS (9)
  - Coma scale abnormal [Unknown]
  - Hypotension [Unknown]
  - Hypothermia [Unknown]
  - Carnitine decreased [Recovered/Resolved]
  - Toxicity to various agents [Unknown]
  - Drug level increased [Recovered/Resolved]
  - Hypocalcaemia [Unknown]
  - Hyperammonaemia [Unknown]
  - Hypernatraemia [Unknown]
